FAERS Safety Report 15423716 (Version 1)
Quarter: 2018Q3

REPORT INFORMATION
  Report Type: Spontaneous
  Country: US (occurrence: US)
  Receive Date: 20180925
  Receipt Date: 20180925
  Transmission Date: 20181010
  Serious: No
  Sender: FDA-Public Use
  Company Number: US-BAYER-2018-177835

PATIENT
  Age: 81 Year
  Sex: Male
  Weight: 66 kg

DRUGS (1)
  1. MIRALAX [Suspect]
     Active Substance: POLYETHYLENE GLYCOL 3350
     Dosage: 17 G, UNK
     Route: 048

REACTIONS (3)
  - Extra dose administered [Unknown]
  - Product use in unapproved indication [Unknown]
  - Off label use [None]
